FAERS Safety Report 8967954 (Version 1)
Quarter: 2012Q4

REPORT INFORMATION
  Report Type: Spontaneous
  Country: RU (occurrence: None)
  Receive Date: 20121210
  Receipt Date: 20121210
  Transmission Date: 20130627
  Serious: Yes (Hospitalization)
  Sender: FDA-Public Use
  Company Number: B0850314A

PATIENT
  Sex: Male

DRUGS (4)
  1. VOTRIENT [Suspect]
     Indication: RENAL CELL CARCINOMA
     Route: 048
     Dates: start: 20121011, end: 201205
  2. BEVACIZUMAB [Concomitant]
  3. INTERFERON ALFA-2A [Concomitant]
  4. AXITINIB [Concomitant]

REACTIONS (2)
  - Pneumonitis [None]
  - Malignant neoplasm progression [None]
